FAERS Safety Report 21955327 (Version 6)
Quarter: 2023Q2

REPORT INFORMATION
  Report Type: Spontaneous
  Country: NL (occurrence: NL)
  Receive Date: 20230206
  Receipt Date: 20230510
  Transmission Date: 20230721
  Serious: Yes (Hospitalization)
  Sender: FDA-Public Use
  Company Number: NL-JNJFOC-20230154959

PATIENT
  Age: 67 Year
  Sex: Female

DRUGS (6)
  1. STELARA [Suspect]
     Active Substance: USTEKINUMAB
     Indication: Pustular psoriasis
     Dosage: 45 MG, REPEAT AFTER 4 WEEKS, THEN EVERY 12 WEEKS
     Route: 058
     Dates: start: 20220117, end: 20220823
  2. LIDOCAINE [Concomitant]
     Active Substance: LIDOCAINE
     Indication: Product used for unknown indication
     Dosage: OINTMENT, 50 MG/G (MILLIGRAMS PER GRAM)
     Route: 065
  3. ALBUTEROL [Concomitant]
     Active Substance: ALBUTEROL
     Indication: Product used for unknown indication
     Dosage: AEROSOL, 100 G/DOSE (MICROGRAMS PER DOSE)
     Route: 065
  4. COAL TAR [Concomitant]
     Active Substance: COAL TAR
     Dosage: COAL TAR CREAM 20MG/G
     Route: 065
  5. METOPROLOL SUCCINATE [Concomitant]
     Active Substance: METOPROLOL SUCCINATE
     Indication: Product used for unknown indication
     Dosage: MODIFIED-RELEASE TABLET, 25 MG (MILLIGRAMS)
     Route: 065
  6. CLOBETASOL [Concomitant]
     Active Substance: CLOBETASOL
     Indication: Product used for unknown indication
     Dosage: OINTMENT, 0.5 MG/G (MILLIGRAMS PER GRAM)
     Route: 065

REACTIONS (3)
  - Anxiety [Recovered/Resolved]
  - Panic attack [Recovered/Resolved]
  - Off label use [Unknown]

NARRATIVE: CASE EVENT DATE: 20220101
